FAERS Safety Report 25348749 (Version 1)
Quarter: 2025Q2

REPORT INFORMATION
  Report Type: Spontaneous
  Country: FR (occurrence: FR)
  Receive Date: 20250522
  Receipt Date: 20250522
  Transmission Date: 20250717
  Serious: Yes (Other)
  Sender: AUROBINDO
  Company Number: FR-AFSSAPS-SE2025000303

PATIENT
  Age: 20 Year
  Sex: Female
  Weight: 62 kg

DRUGS (3)
  1. LAMOTRIGINE [Suspect]
     Active Substance: LAMOTRIGINE
     Indication: Affective disorder
     Dosage: 200 MILLIGRAM, ONCE A DAY
     Route: 048
     Dates: start: 202502
  2. OLANZAPINE [Suspect]
     Active Substance: OLANZAPINE
     Indication: Affective disorder
     Dosage: 5 MILLIGRAM, ONCE A DAY
     Route: 048
     Dates: start: 202502, end: 20250331
  3. OXAZEPAM [Suspect]
     Active Substance: OXAZEPAM
     Indication: Affective disorder
     Route: 048
     Dates: start: 202502

REACTIONS (1)
  - Central sleep apnoea syndrome [Not Recovered/Not Resolved]

NARRATIVE: CASE EVENT DATE: 20250201
